FAERS Safety Report 12657739 (Version 1)
Quarter: 2016Q3

REPORT INFORMATION
  Report Type: Spontaneous
  Country: FR (occurrence: FR)
  Receive Date: 20160816
  Receipt Date: 20160816
  Transmission Date: 20161109
  Serious: Yes (Hospitalization)
  Sender: FDA-Public Use
  Company Number: FR-ASTRAZENECA-2016SE85923

PATIENT
  Age: 17729 Day
  Sex: Female

DRUGS (11)
  1. KETAMINE [Suspect]
     Active Substance: KETAMINE
     Dosage: 70.0MG UNKNOWN
     Route: 041
     Dates: start: 201502
  2. LYRICA [Suspect]
     Active Substance: PREGABALIN
     Route: 048
     Dates: start: 201209, end: 20150101
  3. KETAMINE [Suspect]
     Active Substance: KETAMINE
     Dosage: 50.0MG UNKNOWN
     Route: 041
     Dates: start: 201410
  4. HYDROCORTISONE. [Suspect]
     Active Substance: HYDROCORTISONE
     Route: 065
  5. KETAMINE [Suspect]
     Active Substance: KETAMINE
     Dosage: 70.0MG UNKNOWN
     Route: 041
     Dates: start: 201501
  6. PARACETAMOL [Suspect]
     Active Substance: ACETAMINOPHEN
     Route: 065
  7. LERCAN [Suspect]
     Active Substance: LERCANIDIPINE
     Route: 065
  8. INEXIUM [Suspect]
     Active Substance: ESOMEPRAZOLE
     Route: 048
  9. KETAMINE [Suspect]
     Active Substance: KETAMINE
     Dosage: 50.0MG UNKNOWN
     Route: 041
     Dates: start: 201411
  10. KETAMINE [Suspect]
     Active Substance: KETAMINE
     Dosage: 50.0MG UNKNOWN
     Route: 041
     Dates: start: 201407
  11. SKENAN [Suspect]
     Active Substance: MORPHINE SULFATE
     Route: 048

REACTIONS (2)
  - Hepatic steatosis [Unknown]
  - Hepatocellular injury [Recovered/Resolved]

NARRATIVE: CASE EVENT DATE: 20150323
